FAERS Safety Report 4852030-3 (Version None)
Quarter: 2005Q4

REPORT INFORMATION
  Report Type: 
  Country: None (occurrence: None)
  Receive Date: 20051123
  Receipt Date: 20051003
  Transmission Date: 20060501
  Serious: No
  Sender: FDA-Public Use
  Company Number: 217600

PATIENT
  Age: 40 Year
  Sex: Male
  Weight: 88.9 kg

DRUGS (5)
  1. RAPTIVA [Suspect]
     Indication: PSORIATIC ARTHROPATHY
     Dosage: 0.9 ML, 1/WEEK, SUBCUTANEOUS
     Route: 058
     Dates: start: 20050426
  2. WELLBUTRIN [Concomitant]
  3. DIOVAN [Concomitant]
  4. TOPICAL STEROIDS (TOPICAL STEROID NOS) [Concomitant]
  5. HUMIRA (ADALIMUMAB) [Concomitant]

REACTIONS (2)
  - HYPERSENSITIVITY [None]
  - PHOTOSENSITIVITY REACTION [None]
